FAERS Safety Report 5386163-2 (Version None)
Quarter: 2007Q3

REPORT INFORMATION
  Report Type: 
  Country: None (occurrence: None)
  Receive Date: 20070711
  Receipt Date: 20070711
  Transmission Date: 20080115
  Serious: Yes (Hospitalization)
  Sender: FDA-Public Use
  Company Number: None

PATIENT
  Sex: Male
  Weight: 106 kg

DRUGS (14)
  1. CAMPATH [Suspect]
     Dosage: SEE IMAGE
     Dates: start: 20070521
  2. CAMPATH [Suspect]
     Dosage: SEE IMAGE
     Dates: start: 20070523
  3. CAMPATH [Suspect]
     Dosage: SEE IMAGE
     Dates: start: 20070527
  4. ACTOPLUS [Concomitant]
  5. ALLOPURINOL [Concomitant]
  6. ATORVASTATIN [Concomitant]
  7. LASIX [Concomitant]
  8. ZOFRAN [Concomitant]
  9. CIPRO [Concomitant]
  10. NEULASTA [Concomitant]
  11. PREDNISONE [Concomitant]
  12. VALTREX [Concomitant]
  13. COREG [Concomitant]
  14. CHOP [Concomitant]

REACTIONS (3)
  - BLOOD PRESSURE DIASTOLIC DECREASED [None]
  - FEBRILE NEUTROPENIA [None]
  - OXYGEN SATURATION DECREASED [None]
